FAERS Safety Report 4434687-4 (Version None)
Quarter: 2004Q3

REPORT INFORMATION
  Report Type: 
  Country: None (occurrence: None)
  Receive Date: 20040730
  Receipt Date: 20030703
  Transmission Date: 20050211
  Serious: Yes (Other)
  Sender: FDA-Public Use
  Company Number: 2003-07-0566

PATIENT
  Age: 51 Year
  Sex: Female

DRUGS (2)
  1. INTRON A [Suspect]
     Dosage: SUBCUTANEOUS
     Route: 058
  2. REBETOL [Suspect]
     Dosage: ORAL
     Route: 048

REACTIONS (1)
  - HYPOTHYROIDISM [None]
